FAERS Safety Report 20965417 (Version 2)
Quarter: 2022Q2

REPORT INFORMATION
  Report Type: Spontaneous
  Country: BR (occurrence: BR)
  Receive Date: 20220616
  Receipt Date: 20220627
  Transmission Date: 20220721
  Serious: No
  Sender: FDA-Public Use
  Company Number: BR-BoehringerIngelheim-2022-BI-163460

PATIENT
  Sex: Male
  Weight: 94 kg

DRUGS (2)
  1. ATROVENT [Suspect]
     Active Substance: IPRATROPIUM BROMIDE
     Indication: Drug therapy
     Dosage: 22 DROPS
     Route: 055
  2. ATROVENT [Suspect]
     Active Substance: IPRATROPIUM BROMIDE
     Indication: Pneumonia

REACTIONS (1)
  - Product use in unapproved indication [Not Recovered/Not Resolved]
